FAERS Safety Report 24211838 (Version 1)
Quarter: 2024Q3

REPORT INFORMATION
  Report Type: Spontaneous
  Country: FI (occurrence: FI)
  Receive Date: 20240814
  Receipt Date: 20240814
  Transmission Date: 20241016
  Serious: Yes (Disabling)
  Sender: MILLICENT HOLDINGS
  Company Number: FI-Millicent Holdings Ltd.-MILL20241076

PATIENT
  Age: 68 Year
  Sex: Female

DRUGS (1)
  1. INTRAROSA [Suspect]
     Active Substance: PRASTERONE
     Indication: Mucosal disorder
     Route: 067
     Dates: start: 20230201, end: 20240711

REACTIONS (3)
  - Breast cancer [Recovering/Resolving]
  - Off label use [Unknown]
  - Off label use [Unknown]

NARRATIVE: CASE EVENT DATE: 20230201
